FAERS Safety Report 5060792-8 (Version None)
Quarter: 2006Q3

REPORT INFORMATION
  Report Type: 
  Country: None (occurrence: None)
  Receive Date: 20060725
  Receipt Date: 20060525
  Transmission Date: 20061208
  Serious: Yes (Disabling, Other)
  Sender: FDA-Public Use
  Company Number: PHFR2006GB01816

PATIENT
  Age: 52 Year
  Sex: Female

DRUGS (11)
  1. AMISULPRIDE [Concomitant]
     Indication: PSYCHOTIC DISORDER
     Dosage: 100 MG, BID
     Route: 065
     Dates: start: 20060706
  2. METFORMIN [Concomitant]
     Indication: DIABETES MELLITUS
     Dosage: 1000 MG/DAY
     Route: 048
     Dates: start: 20060424
  3. GLICLAZIDE [Concomitant]
     Indication: DIABETES MELLITUS
     Dosage: 160 MG/DAY
     Route: 048
     Dates: start: 20060424
  4. OMEPRAZOLE [Concomitant]
     Indication: GASTRITIS
     Dosage: 20 MG/DAY
     Route: 048
     Dates: start: 20060424
  5. ASPIRIN [Concomitant]
     Dosage: 75 MG/DAY
     Route: 048
     Dates: start: 20060424
  6. ATORVASTATIN CALCIUM [Concomitant]
     Dosage: 10 MG/DAY
     Route: 048
  7. PROCYCLIDINE HYDROCHLORIDE 2MG TAB [Concomitant]
     Dosage: 5 MG/DAY
     Route: 048
     Dates: start: 20060424
  8. FYBOGEL [Concomitant]
     Indication: CONSTIPATION
     Route: 065
  9. CLOZARIL [Suspect]
     Indication: SCHIZOPHRENIA
     Dosage: UNK, UNK
     Route: 048
     Dates: start: 20051205
  10. CLOZARIL [Suspect]
     Dosage: 450MG / DAY
     Route: 048
     Dates: start: 20060420, end: 20060613
  11. CLOZARIL [Suspect]
     Dosage: 400MG  / DAY
     Route: 048

REACTIONS (7)
  - ANGINA PECTORIS [None]
  - CONSTIPATION [None]
  - ENURESIS [None]
  - LOWER RESPIRATORY TRACT INFECTION [None]
  - OBSESSIVE-COMPULSIVE DISORDER [None]
  - SEDATION [None]
  - STAPHYLOCOCCAL INFECTION [None]
